FAERS Safety Report 15744586 (Version 2)
Quarter: 2019Q1

REPORT INFORMATION
  Report Type: Report from Study
  Country: US (occurrence: US)
  Receive Date: 20181220
  Receipt Date: 20190103
  Transmission Date: 20190417
  Serious: Yes (Hospitalization, Other)
  Sender: FDA-Public Use
  Company Number: PHEH2018US053133

PATIENT
  Sex: Female

DRUGS (1)
  1. ENTRESTO [Suspect]
     Active Substance: SACUBITRIL\VALSARTAN
     Indication: PRODUCT USED FOR UNKNOWN INDICATION
     Route: 048

REACTIONS (7)
  - Hypotension [Unknown]
  - Fluid overload [Unknown]
  - Weight fluctuation [Unknown]
  - Diabetes mellitus [Unknown]
  - Abdominal distension [Unknown]
  - Chest discomfort [Unknown]
  - Hypertension [Unknown]
